FAERS Safety Report 6889420-3 (Version None)
Quarter: 2010Q3

REPORT INFORMATION
  Report Type: 
  Country: None (occurrence: None)
  Receive Date: 20100730
  Receipt Date: 20080221
  Transmission Date: 20110219
  Serious: No
  Sender: FDA-Public Use
  Company Number: US-PFIZER INC-2008017185

PATIENT
  Age: 86 Year
  Sex: Male

DRUGS (5)
  1. LIPITOR [Suspect]
     Indication: BLOOD CHOLESTEROL ABNORMAL
     Route: 048
     Dates: start: 20030101
  2. CELEBREX [Concomitant]
     Indication: ARTHRITIS
  3. TESTOSTERONE [Concomitant]
     Indication: PROSTATOMEGALY
  4. ACETYLSALICYLIC ACID SRT [Concomitant]
     Indication: HYPERTENSION
  5. NEXIUM [Concomitant]

REACTIONS (4)
  - AMNESIA [None]
  - BACK PAIN [None]
  - HYPERTENSION [None]
  - PRURITUS [None]
